FAERS Safety Report 23609246 (Version 1)
Quarter: 2024Q1

REPORT INFORMATION
  Report Type: Report from Study
  Country: CA (occurrence: CA)
  Receive Date: 20240308
  Receipt Date: 20240308
  Transmission Date: 20240410
  Serious: Yes (Hospitalization, Other)
  Sender: FDA-Public Use
  Company Number: CA-TAKEDA-2024TUS001889

PATIENT
  Age: 23 Year
  Sex: Female

DRUGS (8)
  1. VEDOLIZUMAB [Suspect]
     Active Substance: VEDOLIZUMAB
     Indication: Graft versus host disease in gastrointestinal tract
     Dosage: 300 MILLIGRAM
     Route: 042
     Dates: start: 20231225
  2. METHYLPREDNISOLONE [Concomitant]
     Active Substance: METHYLPREDNISOLONE
     Dosage: 2 MILLIGRAM/KILOGRAM
  3. RUXOLITINIB [Concomitant]
     Active Substance: RUXOLITINIB
     Dosage: UNK
     Dates: start: 20231213
  4. TACROLIMUS [Concomitant]
     Active Substance: TACROLIMUS
     Dosage: UNK
  5. BECLOMETHASONE [Concomitant]
     Active Substance: BECLOMETHASONE
     Dosage: UNK
  6. BUDESONIDE [Concomitant]
     Active Substance: BUDESONIDE
     Dosage: UNK
  7. CLONAZEPAM [Concomitant]
     Active Substance: CLONAZEPAM
     Dosage: 0.25 MILLIGRAM
  8. CLONAZEPAM [Concomitant]
     Active Substance: CLONAZEPAM
     Dosage: 1 MILLIGRAM

REACTIONS (4)
  - Ileus [Not Recovered/Not Resolved]
  - Blood albumin decreased [Unknown]
  - Therapeutic product effect decreased [Not Recovered/Not Resolved]
  - Off label use [Unknown]

NARRATIVE: CASE EVENT DATE: 20231225
